FAERS Safety Report 10802402 (Version 1)
Quarter: 2015Q1

REPORT INFORMATION
  Report Type: Spontaneous
  Country: IT (occurrence: IT)
  Receive Date: 20150217
  Receipt Date: 20150217
  Transmission Date: 20150721
  Serious: Yes (Hospitalization, Other)
  Sender: FDA-Public Use
  Company Number: IT-PFIZER INC-2015057807

PATIENT
  Age: 73 Year
  Sex: Female

DRUGS (8)
  1. METFORAL [Concomitant]
     Active Substance: METFORMIN HYDROCHLORIDE
     Dosage: 1500 MG, UNK
  2. NITRODERM [Concomitant]
     Active Substance: NITROGLYCERIN
     Dosage: 5 MG, UNK
  3. SINTROM [Concomitant]
     Active Substance: ACENOCOUMAROL
     Dosage: 1 MG, UNK
  4. ZYLORIC [Concomitant]
     Active Substance: ALLOPURINOL
     Dosage: 300 MG, UNK
  5. CARDICOR [Concomitant]
     Active Substance: BISOPROLOL
     Dosage: 2.5 MG, UNK
  6. KEPPRA [Concomitant]
     Active Substance: LEVETIRACETAM
     Dosage: 500 MG, UNK
     Route: 048
  7. DROPAXIN [Concomitant]
     Dosage: 10 MG, UNK
  8. LYRICA [Suspect]
     Active Substance: PREGABALIN
     Indication: DEMENTED RELATIVE
     Dosage: 50 MG, DAILY
     Route: 048
     Dates: start: 20120101, end: 20141212

REACTIONS (3)
  - Product use issue [Unknown]
  - Anuria [Recovering/Resolving]
  - Acute kidney injury [Recovering/Resolving]

NARRATIVE: CASE EVENT DATE: 20141212
